FAERS Safety Report 23396951 (Version 1)
Quarter: 2024Q1

REPORT INFORMATION
  Report Type: Spontaneous
  Country: US (occurrence: None)
  Receive Date: 20240111
  Receipt Date: 20240111
  Transmission Date: 20240409
  Serious: No
  Sender: FDA-Public Use
  Company Number: None

PATIENT
  Age: 81 Year
  Sex: Male

DRUGS (11)
  1. TASIGNA [Suspect]
     Active Substance: NILOTINIB
  2. FOLIC ACID [Concomitant]
  3. ONDANSETRON [Concomitant]
  4. AMLODIPINE BESYLATE [Concomitant]
  5. CETRIZINE [Concomitant]
  6. CLONAZEPAM [Concomitant]
  7. DUTASTERIDE [Concomitant]
  8. FAMOTIDINE [Concomitant]
  9. SERTRALINE [Concomitant]
  10. SIMVASTATIN [Concomitant]
  11. ZOLPIDEM [Concomitant]

REACTIONS (3)
  - Fall [None]
  - Craniocerebral injury [None]
  - CSF test abnormal [None]

NARRATIVE: CASE EVENT DATE: 20231201
